FAERS Safety Report 4384413-2 (Version None)
Quarter: 2004Q2

REPORT INFORMATION
  Report Type: 
  Country: None (occurrence: None)
  Receive Date: 20040624
  Receipt Date: 20040507
  Transmission Date: 20050107
  Serious: Yes (Hospitalization, Other)
  Sender: FDA-Public Use
  Company Number: BE-GLAXOSMITHKLINE-B0332456A

PATIENT
  Age: 4 Month
  Sex: Female
  Weight: 6.6 kg

DRUGS (1)
  1. ZYBAN [Suspect]
     Route: 048

REACTIONS (19)
  - ABNORMAL BEHAVIOUR [None]
  - ACCIDENTAL EXPOSURE [None]
  - ACIDOSIS [None]
  - CONVULSION [None]
  - CRYING [None]
  - CYANOSIS [None]
  - DRUG TOXICITY [None]
  - EMOTIONAL DISTRESS [None]
  - EXTREMITY CONTRACTURE [None]
  - EYE MOVEMENT DISORDER [None]
  - HAEMOGLOBIN DECREASED [None]
  - HYPOTONIA [None]
  - IRRITABILITY [None]
  - NERVOUS SYSTEM DISORDER [None]
  - PALLOR [None]
  - RESPIRATORY ACIDOSIS [None]
  - RESTLESSNESS [None]
  - SKIN DISCOLOURATION [None]
  - TREATMENT NONCOMPLIANCE [None]
